FAERS Safety Report 25596473 (Version 1)
Quarter: 2025Q3

REPORT INFORMATION
  Report Type: Spontaneous
  Country: MX (occurrence: MX)
  Receive Date: 20250723
  Receipt Date: 20250723
  Transmission Date: 20251021
  Serious: Yes (Congenital Anomaly)
  Sender: ELI LILLY AND COMPANY
  Company Number: MX-ELI_LILLY_AND_COMPANY-MX202507015366

PATIENT
  Sex: Female

DRUGS (4)
  1. HUMALOG [Suspect]
     Active Substance: INSULIN LISPRO
     Indication: Product used for unknown indication
     Dosage: 12 U, EACH MORNING
     Route: 064
     Dates: start: 20250208
  2. HUMALOG [Suspect]
     Active Substance: INSULIN LISPRO
     Indication: Product used for unknown indication
     Dosage: 12 U, EACH MORNING
     Route: 064
     Dates: start: 20250208
  3. HUMALOG [Suspect]
     Active Substance: INSULIN LISPRO
     Dosage: 19 U, BID
     Route: 064
     Dates: start: 20250208
  4. HUMALOG [Suspect]
     Active Substance: INSULIN LISPRO
     Dosage: 19 U, BID
     Route: 064
     Dates: start: 20250208

REACTIONS (2)
  - Cardiac murmur [Unknown]
  - Foetal exposure during pregnancy [Unknown]
